FAERS Safety Report 6983443-1 (Version None)
Quarter: 2010Q3

REPORT INFORMATION
  Report Type: 
  Country: None (occurrence: None)
  Receive Date: 20100914
  Receipt Date: 20100914
  Transmission Date: 20110219
  Serious: Yes (Hospitalization)
  Sender: FDA-Public Use
  Company Number: None

PATIENT
  Sex: Female
  Weight: 50.9 kg

DRUGS (10)
  1. MEROPENEM 1 GRAM BRAND MERREM [Suspect]
     Indication: BACTERAEMIA
     Dosage: 1 GM Q8H IV
     Route: 042
     Dates: start: 20100812, end: 20100830
  2. LASIX [Concomitant]
  3. AMITRIPTYLINE HCL [Concomitant]
  4. AMLODIPINE [Concomitant]
  5. VITAMIN D [Concomitant]
  6. ATORVASTATIN CALCIUM [Concomitant]
  7. CALCIUM+D [Concomitant]
  8. CELEBREX [Concomitant]
  9. CENTRUM VITAMIN [Concomitant]
  10. HYDROCORTISONE [Concomitant]

REACTIONS (2)
  - HYPOKALAEMIA [None]
  - URINE POTASSIUM INCREASED [None]
